FAERS Safety Report 9448614 (Version 2)
Quarter: 2018Q1

REPORT INFORMATION
  Report Type: Report from Study
  Country: US (occurrence: US)
  Receive Date: 20130808
  Receipt Date: 20180119
  Transmission Date: 20180509
  Serious: Yes (Hospitalization, Disabling, Other)
  Sender: FDA-Public Use
  Company Number: PHHO2013US010108

PATIENT
  Age: 66 Year
  Sex: Female
  Weight: 63.95 kg

DRUGS (44)
  1. ALPRAZOLAM. [Concomitant]
     Active Substance: ALPRAZOLAM
     Dosage: 1 MG, TABLET
  2. FLUZONE [Concomitant]
     Active Substance: INFLUENZA A VIRUS A/CALIFORNIA/7/2009 X-179A (H1N1) ANTIGEN (FORMALDEHYDE INACTIVATED)\INFLUENZA A VIRUS A/VICTORIA/210/2009 X-187 (H3N2) ANTIGEN (FORMALDEHYDE INACTIVATED)\INFLUENZA B VIRUS B/BRISBANE/60/2008 ANTIGEN (FORMALDEHYDE INACTIVATED)
     Dosage: 180 UG /0.5 ML
     Route: 030
  3. HYDROCODONE/ACETAMINOPHEN [Concomitant]
     Active Substance: ACETAMINOPHEN\HYDROCODONE
     Dosage: 10 MG / 325 MG (1 TABLET)
  4. OMEPRAZOLE. [Concomitant]
     Active Substance: OMEPRAZOLE
     Indication: PEPTIC ULCER
     Dosage: 40 MG, QD (CAPSULE)
     Route: 048
     Dates: start: 20090706
  5. PANTOPRAZOLE [Concomitant]
     Active Substance: PANTOPRAZOLE
     Dosage: 40 MG, TABLET
  6. STROMECTOL [Concomitant]
     Active Substance: IVERMECTIN
     Dosage: 3 MG, TABLET
  7. TRAMADOL. [Concomitant]
     Active Substance: TRAMADOL
     Dosage: 50 MG, TABLET
  8. FLUTICASONE. [Concomitant]
     Active Substance: FLUTICASONE
     Dosage: 50 UG, SPRAY SUSPENSION
     Route: 045
  9. HYDROCODONE/ACETAMINOPHEN [Concomitant]
     Active Substance: ACETAMINOPHEN\HYDROCODONE
     Dosage: 5 MG / 325 MG (1 TABLET)
  10. HYDROCODONE/ACETAMINOPHEN [Concomitant]
     Active Substance: ACETAMINOPHEN\HYDROCODONE
     Dosage: 5 MG / 500 MG (1 TABLET)
  11. NITROFURANTOIN MONOHYDRATE MACROCRYSTALS [Concomitant]
     Active Substance: NITROFURANTOIN\NITROFURANTOIN MONOHYDRATE
     Dosage: 100 MG, CAPSULE
  12. NOVOLOG [Concomitant]
     Active Substance: INSULIN ASPART
     Dosage: 100 IU/ML, QD (15 UNITS EVERYDAY)
     Route: 058
  13. TRIAMCINOLONE ACETONIDE. [Concomitant]
     Active Substance: TRIAMCINOLONE ACETONIDE
     Dosage: 0.1 %, UNK
     Route: 061
  14. ZOLPIDEM [Concomitant]
     Active Substance: ZOLPIDEM\ZOLPIDEM TARTRATE
     Dosage: 10 MG, QHS (1 QHS)
     Route: 048
  15. LYRICA [Concomitant]
     Active Substance: PREGABALIN
     Dosage: 50 MG, CAPSULE
  16. SERTRALINE HYDROCHLORIDE. [Concomitant]
     Active Substance: SERTRALINE HYDROCHLORIDE
     Dosage: 100 MG, QD (1 TABLET QD)
     Route: 048
  17. FENTANYL. [Concomitant]
     Active Substance: FENTANYL
     Dosage: 12 UG/HR, PATCH
     Route: 062
  18. METHOCARBAMOL. [Concomitant]
     Active Substance: METHOCARBAMOL
     Dosage: 750 MG, TABLET
  19. ATORVASTATIN [Concomitant]
     Active Substance: ATORVASTATIN
     Dosage: 40 MG, TABLET
  20. FUROSEMIDE. [Concomitant]
     Active Substance: FUROSEMIDE
     Indication: CARDIAC FAILURE CHRONIC
     Dosage: 40 MG, QD (40 MG TABLET. 1 QD)
     Dates: start: 20080908
  21. HYDROCODONE/ACETAMINOPHEN [Concomitant]
     Active Substance: ACETAMINOPHEN\HYDROCODONE
     Dosage: 7.5 MG / 325 MG
  22. ALDACTONE [Concomitant]
     Active Substance: SPIRONOLACTONE
  23. POTASSIUM CHLORIDE. [Concomitant]
     Active Substance: POTASSIUM CHLORIDE
     Dosage: 20 MEQ, QD (1 TABLET EVERY DAY)
     Route: 048
     Dates: end: 20130526
  24. SPIRONOLACTONE. [Concomitant]
     Active Substance: SPIRONOLACTONE
     Dosage: 25 MG, 1 TABLET EVERY OTHER DAY
  25. SUCRALFATE. [Concomitant]
     Active Substance: SUCRALFATE
     Dosage: 1 G, TABLET
  26. WARFARIN [Concomitant]
     Active Substance: WARFARIN
     Dosage: 1 MG, TABLET
  27. CARVEDILOL. [Concomitant]
     Active Substance: CARVEDILOL
     Indication: CARDIAC FAILURE CHRONIC
     Dosage: 25 MG, BID (25 MG TABLET,1 BID)
     Route: 048
     Dates: start: 20090706
  28. CLOPIDOGREL [Concomitant]
     Active Substance: CLOPIDOGREL BISULFATE
     Dosage: 75 MG, QD (75 MG TABLET 1 QD)
     Route: 048
  29. ENOXAPARIN [Concomitant]
     Active Substance: ENOXAPARIN
     Dosage: 60 MG/ML, UNK
     Route: 058
  30. LANTUS [Concomitant]
     Active Substance: INSULIN GLARGINE
     Dosage: 100 UNIT / ML (60 UNITS EVERY DAY FOR 90 DAYS)
     Route: 058
  31. MONTELUKAST [Concomitant]
     Active Substance: MONTELUKAST SODIUM
  32. TRIAMCINOLONE ACETONIDE. [Concomitant]
     Active Substance: TRIAMCINOLONE ACETONIDE
     Dosage: 0.1 %, UNK
     Route: 061
  33. WARFARIN [Concomitant]
     Active Substance: WARFARIN
     Dosage: 5 MG, TABLET
  34. DIGOXIN. [Concomitant]
     Active Substance: DIGOXIN
     Dosage: 125 UG, QD (125 MCG, 1 TABLET EVERYDAY)
     Route: 048
  35. LISINOPRIL. [Concomitant]
     Active Substance: LISINOPRIL
     Indication: HYPERTENSION
     Dosage: 40 MG, QD
     Route: 048
     Dates: start: 20080908, end: 20130526
  36. PERMETHRIN. [Concomitant]
     Active Substance: PERMETHRIN
     Dosage: 5 %, UNK
  37. PREDNISONE. [Concomitant]
     Active Substance: PREDNISONE
     Dosage: 10 MG, QD (1 TABLET QD)
  38. VICODIN [Concomitant]
     Active Substance: ACETAMINOPHEN\HYDROCODONE BITARTRATE
     Dosage: 5 MG -300 MG, TABLET
  39. ILARIS [Suspect]
     Active Substance: CANAKINUMAB
     Indication: CARDIOVASCULAR EVENT PROPHYLAXIS
     Dosage: 150 MG, QUARTERLY
     Route: 058
     Dates: start: 20110907, end: 20120606
  40. INSULIN [Concomitant]
     Active Substance: INSULIN NOS
  41. FENOFIBRATE. [Concomitant]
     Active Substance: FENOFIBRATE
     Dosage: 180 MG (TABLET)
  42. HUMALOG [Concomitant]
     Active Substance: INSULIN LISPRO
     Indication: TYPE 2 DIABETES MELLITUS
     Dosage: 100 IU, BID
     Dates: start: 20110716
  43. HYDROCODONE/ACETAMINOPHEN [Concomitant]
     Active Substance: ACETAMINOPHEN\HYDROCODONE
     Dosage: 7.5 MG / 750 MG
  44. TRIAMCINOLONE ACETONIDE. [Concomitant]
     Active Substance: TRIAMCINOLONE ACETONIDE
     Dosage: 0.5 %, UNK
     Route: 061

REACTIONS (4)
  - Urinary tract infection [Recovered/Resolved]
  - Diverticulum [Recovered/Resolved]
  - Septic shock [Recovered/Resolved]
  - Acute kidney injury [Recovered/Resolved]

NARRATIVE: CASE EVENT DATE: 20130526
